FAERS Safety Report 6925372-5 (Version None)
Quarter: 2010Q3

REPORT INFORMATION
  Report Type: 
  Country: None (occurrence: None)
  Receive Date: 20100816
  Receipt Date: 20100803
  Transmission Date: 20110219
  Serious: Yes (Life-Threatening)
  Sender: FDA-Public Use
  Company Number: GB-GENZYME-CLOF-1001096

PATIENT
  Sex: Female

DRUGS (5)
  1. EVOLTRA [Suspect]
     Indication: ACUTE MYELOID LEUKAEMIA
     Dosage: 24 MG, QDX5
     Route: 042
     Dates: start: 20090619, end: 20090623
  2. DAUNOXOME [Suspect]
     Indication: ACUTE MYELOID LEUKAEMIA
     Dosage: 47.5 MG, QOD
     Route: 042
     Dates: start: 20090619, end: 20090623
  3. INTERFERON [Concomitant]
     Indication: PRODUCT USED FOR UNKNOWN INDICATION
     Dosage: UNK
     Route: 058
     Dates: start: 20090101
  4. ACYCLOVIR [Concomitant]
     Indication: PROPHYLAXIS
     Dosage: 400 MG, QD
     Route: 048
     Dates: start: 20090101
  5. COTRIM [Concomitant]
     Indication: PROPHYLAXIS
     Dosage: 360 MG, QD
     Route: 048
     Dates: start: 20090101

REACTIONS (1)
  - CARDIAC FAILURE [None]
